FAERS Safety Report 8394488-1 (Version None)
Quarter: 2012Q2

REPORT INFORMATION
  Report Type: 
  Country: None (occurrence: None)
  Receive Date: 20120530
  Receipt Date: 20120525
  Transmission Date: 20120825
  Serious: Yes (Death, Hospitalization)
  Sender: FDA-Public Use
  Company Number: PHFR2012GB003168

PATIENT
  Sex: Male

DRUGS (3)
  1. CLOZARIL [Suspect]
     Indication: SCHIZOPHRENIA
     Dosage: UNK UKN, UNK
     Route: 048
     Dates: start: 20000721
  2. NITROGLYCERIN [Concomitant]
     Indication: ANGINA PECTORIS
  3. PROCYCLIDINE HYDROCHLORIDE 2MG TAB [Concomitant]
     Indication: ANGINA PECTORIS

REACTIONS (5)
  - NEUTROPHIL COUNT INCREASED [None]
  - METASTATIC NEOPLASM [None]
  - HAEMATURIA [None]
  - BLADDER CANCER [None]
  - WHITE BLOOD CELL COUNT INCREASED [None]
